FAERS Safety Report 25226516 (Version 3)
Quarter: 2025Q3

REPORT INFORMATION
  Report Type: Spontaneous
  Country: JP (occurrence: JP)
  Receive Date: 20250422
  Receipt Date: 20250803
  Transmission Date: 20251020
  Serious: Yes (Other)
  Sender: ALEXION PHARMACEUTICALS
  Company Number: JP-ASTRAZENECA-250037377_063010_P_1

PATIENT
  Age: 82 Year
  Sex: Male

DRUGS (21)
  1. DAPAGLIFLOZIN [Suspect]
     Active Substance: DAPAGLIFLOZIN
     Indication: Cardiac failure chronic
     Dosage: AFTER BREAKFAST
  2. ENALAPRIL MALEATE [Concomitant]
     Active Substance: ENALAPRIL MALEATE
     Dosage: AFTER BREAKFAST
  3. BISOPROLOL FUMARATE [Concomitant]
     Active Substance: BISOPROLOL FUMARATE
     Dosage: AFTER BREAKFAST
  4. SAMSCA [Concomitant]
     Active Substance: TOLVAPTAN
     Dosage: AFTER BREAKFAST
  5. FUROSEMIDE [Concomitant]
     Active Substance: FUROSEMIDE
     Dosage: AFTER BREAKFAST
  6. IVABRADINE HYDROCHLORIDE [Concomitant]
     Active Substance: IVABRADINE HYDROCHLORIDE
     Dosage: AFTER BREAKFAST AND EVENING MEAL
  7. PIMOBENDAN [Concomitant]
     Active Substance: PIMOBENDAN
     Dosage: AFTER BREAKFAST AND EVENING MEAL
  8. LEVETIRACETAM [Concomitant]
     Active Substance: LEVETIRACETAM
     Dosage: AFTER BREAKFAST AND EVENING MEAL
  9. KREMEZIN [Concomitant]
     Active Substance: ACTIVATED CHARCOAL
     Dosage: BETWEEN BREAKFAST AND LUNCH (AROUND 10 O?CLOCK)
  10. DAYVIGO [Concomitant]
     Active Substance: LEMBOREXANT
     Dosage: BEFORE BEDTIME
  11. TRAZODONE [Concomitant]
     Active Substance: TRAZODONE HYDROCHLORIDE
     Dosage: BEFORE BEDTIME
  12. ZOLPIDEM TARTRATE [Concomitant]
     Active Substance: ZOLPIDEM TARTRATE
     Dosage: BEFORE BEDTIME
  13. Enevo [Concomitant]
     Dosage: AFTER BREAKFAST
  14. CALCIUM POLYSTYRENE SULFONATE [Concomitant]
     Active Substance: CALCIUM POLYSTYRENE SULFONATE
     Dosage: AFTER EACH MEAL
  15. WARFARIN [Concomitant]
     Active Substance: WARFARIN
     Dosage: AFTER EVENING MEAL
  16. REPAGLINIDE [Concomitant]
     Active Substance: REPAGLINIDE
     Dosage: BEFORE EACH MEAL
  17. INSULIN NOS [Concomitant]
     Active Substance: INSULIN NOS
     Indication: Diabetes mellitus
     Route: 065
  18. BLONANSERIN [Concomitant]
     Active Substance: BLONANSERIN
  19. RISPERDAL [Concomitant]
     Active Substance: RISPERIDONE
     Indication: Insomnia
     Route: 065
  20. RISPERDAL [Concomitant]
     Active Substance: RISPERIDONE
     Route: 065
  21. Anti Diabetic [Concomitant]
     Indication: Diabetes mellitus
     Route: 065

REACTIONS (4)
  - Acute pulmonary oedema [Unknown]
  - Fall [Unknown]
  - Somnolence [Unknown]
  - Insomnia [Unknown]
